FAERS Safety Report 5208789-9 (Version None)
Quarter: 2007Q1

REPORT INFORMATION
  Report Type: 
  Country: None (occurrence: None)
  Receive Date: 20070116
  Receipt Date: 20070103
  Transmission Date: 20070707
  Serious: Yes (Death, Hospitalization, Other)
  Sender: FDA-Public Use
  Company Number: CA-AMGEN-US205485

PATIENT
  Age: 42 Year
  Sex: Female

DRUGS (5)
  1. ENBREL [Suspect]
     Indication: RHEUMATOID ARTHRITIS
  2. AZATHIOPRINE [Concomitant]
  3. PREDNISONE TAB [Concomitant]
  4. KETOPROFEN [Concomitant]
     Route: 048
  5. FOLIC ACID [Concomitant]

REACTIONS (8)
  - ACUTE RESPIRATORY DISTRESS SYNDROME [None]
  - GENERALISED OEDEMA [None]
  - HISTIOCYTOSIS HAEMATOPHAGIC [None]
  - LIVER FUNCTION TEST ABNORMAL [None]
  - MULTI-ORGAN FAILURE [None]
  - PYREXIA [None]
  - SEPSIS [None]
  - URINARY TRACT INFECTION [None]
